FAERS Safety Report 9426475 (Version 1)
Quarter: 2013Q3

REPORT INFORMATION
  Report Type: Spontaneous
  Country: US (occurrence: None)
  Receive Date: 20130729
  Receipt Date: 20130729
  Transmission Date: 20140515
  Serious: Yes (Other)
  Sender: FDA-Public Use
  Company Number: None

PATIENT
  Age: 41 Year
  Sex: Female

DRUGS (1)
  1. NUVARING [Suspect]
     Indication: ENDOMETRIOSIS
     Dosage: 1 RING, EVERY 3 WEEKS, VAG
     Route: 067
     Dates: start: 20130701, end: 20130728

REACTIONS (9)
  - Abdominal pain [None]
  - Dizziness [None]
  - Vomiting [None]
  - Headache [None]
  - Nausea [None]
  - Muscle spasms [None]
  - Chest pain [None]
  - Musculoskeletal chest pain [None]
  - Vaginal discharge [None]
